FAERS Safety Report 15776740 (Version 11)
Quarter: 2021Q4

REPORT INFORMATION
  Report Type: Spontaneous
  Country: US (occurrence: US)
  Receive Date: 20181231
  Receipt Date: 20211209
  Transmission Date: 20220303
  Serious: Yes (Hospitalization)
  Sender: FDA-Public Use
  Company Number: US-PFIZER INC-2018528053

PATIENT
  Age: 67 Year
  Sex: Male
  Weight: 92 kg

DRUGS (27)
  1. LYRICA [Suspect]
     Active Substance: PREGABALIN
     Indication: Fibromyalgia
     Dosage: UNK
     Dates: start: 201707
  2. LYRICA [Suspect]
     Active Substance: PREGABALIN
     Indication: Back pain
     Dosage: 75 MG, 2X/DAY
     Dates: start: 2017
  3. LYRICA [Suspect]
     Active Substance: PREGABALIN
     Indication: Neck pain
     Dosage: 100 MG, 2X/DAY, (ONE CAP IN MORNING AND 1 CAPSULE A.NOON)/(1 CAP BY MOUTH 2 (TWO) TIMES DAILY)
     Route: 048
     Dates: start: 20180217
  4. VIIBRYD [Concomitant]
     Active Substance: VILAZODONE HYDROCHLORIDE
     Indication: Bipolar disorder
     Dosage: 40 MG, 1X/DAY
     Route: 048
     Dates: start: 201707
  5. VIIBRYD [Concomitant]
     Active Substance: VILAZODONE HYDROCHLORIDE
     Indication: Anxiety
     Dosage: 40 MG, DAILY
     Dates: start: 201806
  6. VIIBRYD [Concomitant]
     Active Substance: VILAZODONE HYDROCHLORIDE
     Indication: Depression
  7. AMILORIDE HYDROCHLORIDE\HYDROCHLOROTHIAZIDE [Concomitant]
     Active Substance: AMILORIDE HYDROCHLORIDE\HYDROCHLOROTHIAZIDE
     Indication: Blood potassium abnormal
     Dosage: UNK , 1X/DAY
  8. AMILORIDE HYDROCHLORIDE\HYDROCHLOROTHIAZIDE [Concomitant]
     Active Substance: AMILORIDE HYDROCHLORIDE\HYDROCHLOROTHIAZIDE
     Indication: Fluid retention
     Dosage: UNK
     Dates: start: 201107
  9. AMILORIDE HYDROCHLORIDE\HYDROCHLOROTHIAZIDE [Concomitant]
     Active Substance: AMILORIDE HYDROCHLORIDE\HYDROCHLOROTHIAZIDE
     Dosage: UNK
     Dates: start: 2016
  10. AMBIEN [Concomitant]
     Active Substance: ZOLPIDEM TARTRATE
     Dosage: 10 MG, 1X/DAY
     Dates: start: 200506
  11. ASPIRIN [Concomitant]
     Active Substance: ASPIRIN
     Indication: Prophylaxis
     Dosage: 81 MG, 1X/DAY
     Dates: start: 2010
  12. ASPIRIN [Concomitant]
     Active Substance: ASPIRIN
     Dosage: 81 MG, DAILY
     Dates: start: 200001
  13. CELEBREX [Concomitant]
     Active Substance: CELECOXIB
     Indication: Osteoarthritis
     Dosage: UNK
     Dates: start: 201707
  14. CELEBREX [Concomitant]
     Active Substance: CELECOXIB
     Dosage: 200 MG, 1X/DAY
     Dates: start: 201801, end: 20180305
  15. CELEBREX [Concomitant]
     Active Substance: CELECOXIB
     Dosage: UNK
     Dates: start: 201809
  16. FISH OIL [Concomitant]
     Active Substance: FISH OIL
     Indication: Arthropathy
     Dosage: 2000 MG, 1X/DAY
     Dates: start: 200007
  17. FLOMAX [Concomitant]
     Active Substance: TAMSULOSIN HYDROCHLORIDE
     Indication: Benign prostatic hyperplasia
     Dosage: 0.4 MG, 1X/DAY
     Dates: start: 200706
  18. LIPITOR [Concomitant]
     Active Substance: ATORVASTATIN CALCIUM
     Dosage: 40 MG, 1X/DAY
     Dates: start: 199501
  19. LISINOPRIL [Concomitant]
     Active Substance: LISINOPRIL
     Indication: Blood pressure abnormal
     Dosage: 20 MG, 1X/DAY
     Dates: start: 200501
  20. MAGNESIUM OXIDE [Concomitant]
     Active Substance: MAGNESIUM OXIDE
     Dosage: 400 MG, 1X/DAY
     Dates: start: 201806
  21. ACETYLCYSTEINE [Concomitant]
     Active Substance: ACETYLCYSTEINE
     Dosage: 600 MG, DAILY
     Dates: start: 201809
  22. PROVIGIL [Concomitant]
     Active Substance: MODAFINIL
     Dosage: UNK
     Dates: start: 201606, end: 201812
  23. PROVIGIL [Concomitant]
     Active Substance: MODAFINIL
     Dosage: 400 MG, 1X/DAY
     Dates: start: 201802
  24. VITAMIN B COMPLEX WITH C [Concomitant]
     Active Substance: ASCORBIC ACID\CALCIUM PANTOTHENATE\CYANOCOBALAMIN\NIACINAMIDE\PYRIDOXINE HYDROCHLORIDE\RIBOFLAVIN\TH
     Dosage: 150 MG, 1X/DAY
     Dates: start: 200906
  25. VITAMIN D3 [Concomitant]
     Active Substance: CHOLECALCIFEROL
     Dosage: 1500 IU, 1X/DAY
     Dates: start: 201301
  26. VYVANSE [Concomitant]
     Active Substance: LISDEXAMFETAMINE DIMESYLATE
     Dosage: 40 MG, 1X/DAY
     Dates: start: 201903
  27. VITAMIN E [Concomitant]
     Active Substance: .ALPHA.-TOCOPHEROL
     Dosage: 200 IU, DAILY
     Dates: start: 201407

REACTIONS (6)
  - Product dose omission issue [Recovered/Resolved]
  - Withdrawal syndrome [Recovered/Resolved]
  - Feeling abnormal [Recovered/Resolved]
  - Arthralgia [Recovered/Resolved]
  - Burning sensation [Unknown]
  - Memory impairment [Unknown]

NARRATIVE: CASE EVENT DATE: 20180601
